FAERS Safety Report 8079992-8 (Version None)
Quarter: 2012Q1

REPORT INFORMATION
  Report Type: 
  Country: None (occurrence: None)
  Receive Date: 20120128
  Receipt Date: 20110812
  Transmission Date: 20120608
  Serious: No
  Sender: FDA-Public Use
  Company Number: US-ABBOTT-11P-163-0845789-00

PATIENT
  Sex: Female
  Weight: 63.56 kg

DRUGS (3)
  1. NEXIUM [Concomitant]
     Indication: PRODUCT USED FOR UNKNOWN INDICATION
  2. HUMIRA [Suspect]
     Indication: CROHN'S DISEASE
     Dates: start: 20110123, end: 20110401
  3. SYNTHROID [Concomitant]
     Indication: HYPOTHYROIDISM

REACTIONS (6)
  - ARTHRALGIA [None]
  - HEADACHE [None]
  - RASH [None]
  - SYSTEMIC LUPUS ERYTHEMATOSUS [None]
  - INJECTION SITE PRURITUS [None]
  - INJECTION SITE ERYTHEMA [None]
